FAERS Safety Report 17483301 (Version 1)
Quarter: 2020Q1

REPORT INFORMATION
  Report Type: Spontaneous
  Country: JP (occurrence: JP)
  Receive Date: 20200302
  Receipt Date: 20200302
  Transmission Date: 20200409
  Serious: Yes (Other)
  Sender: FDA-Public Use
  Company Number: JP-FOAMIX PHARMACEUTICALS LTD.-2020JP001133

PATIENT

DRUGS (10)
  1. VANCOMYCIN [Suspect]
     Active Substance: VANCOMYCIN
     Indication: STAPHYLOCOCCAL INFECTION
     Dosage: THERAPEUTIC DRUG MONITORING FOR TARGET TROUGH 15-20 UG/ML (DAYS 14-23)
     Route: 065
  2. TEICOPLANIN [Suspect]
     Active Substance: TEICOPLANIN
     Indication: STAPHYLOCOCCAL INFECTION
     Dosage: THERAPEUTIC DRUG MONITORING FOR TARGET TROUGH 15-20 UG/ML (DAYS 42-54)
     Route: 065
  3. TRIMETHOPRIM SULFAMETHOXAZOLE [Suspect]
     Active Substance: SULFAMETHOXAZOLE\TRIMETHOPRIM
     Indication: STAPHYLOCOCCAL INFECTION
     Dosage: 2 DF, BID (2 TABLETS, SINGLE STRENGTH) (DAYS 27-32)
     Route: 065
  4. DOXYCYCLINE. [Suspect]
     Active Substance: DOXYCYCLINE
     Indication: STAPHYLOCOCCAL INFECTION
     Dosage: 100 MG, BID (DAYS 34-36)
     Route: 065
  5. DOXYCYCLINE. [Suspect]
     Active Substance: DOXYCYCLINE
     Dosage: 100 MG, BID (DAYS 57-61)
     Route: 065
  6. MINOCYCLINE [Suspect]
     Active Substance: MINOCYCLINE HYDROCHLORIDE
     Indication: STAPHYLOCOCCAL INFECTION
     Dosage: 100 MG, BID (DAY 62-68)
     Route: 065
  7. DAPTOMYCIN. [Suspect]
     Active Substance: DAPTOMYCIN
     Indication: STAPHYLOCOCCAL INFECTION
     Dosage: 10 MG/KG, DAILY (Q24H) (DAYS 22-32)
     Route: 065
  8. METHYLPREDNISOLONE. [Concomitant]
     Active Substance: METHYLPREDNISOLONE
     Indication: HAEMOPHAGOCYTIC LYMPHOHISTIOCYTOSIS
     Dosage: 1000 MG FOR 5 DAYS
     Route: 065
  9. VANCOMYCIN [Suspect]
     Active Substance: VANCOMYCIN
     Dosage: THERAPEUTIC DRUG MONITORING FOR TARGET TROUGH 15-20 UG/ML (DAYS 33-44)
     Route: 065
  10. PREDNISOLONE. [Concomitant]
     Active Substance: PREDNISOLONE
     Indication: HAEMOPHAGOCYTIC LYMPHOHISTIOCYTOSIS
     Dosage: 1 MG/KG, DAILY
     Route: 065

REACTIONS (5)
  - Pancytopenia [Unknown]
  - Nausea [Unknown]
  - Off label use [Unknown]
  - Pyrexia [Unknown]
  - Erythema [Recovered/Resolved]
